FAERS Safety Report 23699955 (Version 1)
Quarter: 2024Q2

REPORT INFORMATION
  Report Type: Spontaneous
  Country: FR (occurrence: FR)
  Receive Date: 20240403
  Receipt Date: 20240403
  Transmission Date: 20240716
  Serious: Yes (Other)
  Sender: FDA-Public Use
  Company Number: None

PATIENT
  Age: 86 Year
  Sex: Female
  Weight: 67.4 kg

DRUGS (3)
  1. HYDROCHLOROTHIAZIDE [Suspect]
     Active Substance: HYDROCHLOROTHIAZIDE
     Indication: Wrong patient
     Dosage: 25 MG, 1X
     Route: 048
     Dates: start: 20240221, end: 20240221
  2. IRBESARTAN [Suspect]
     Active Substance: IRBESARTAN
     Indication: Wrong patient
     Dosage: 300 MG, 1X
     Route: 048
     Dates: start: 20240221, end: 20240221
  3. INDAPAMIDE [Suspect]
     Active Substance: INDAPAMIDE
     Indication: Wrong patient
     Dosage: 15 MG, 1X
     Route: 048
     Dates: start: 20240221, end: 20240221

REACTIONS (2)
  - Acute kidney injury [Recovered/Resolved]
  - Wrong patient received product [Unknown]

NARRATIVE: CASE EVENT DATE: 20240101
